FAERS Safety Report 5898033-1 (Version None)
Quarter: 2008Q3

REPORT INFORMATION
  Report Type: 
  Country: None (occurrence: None)
  Receive Date: 20080924
  Receipt Date: 20080924
  Transmission Date: 20090109
  Serious: Yes (Hospitalization)
  Sender: FDA-Public Use
  Company Number: None

PATIENT
  Sex: Female
  Weight: 69 kg

DRUGS (8)
  1. CARBOPLATIN [Suspect]
     Dosage: 780 MG
     Dates: end: 20080904
  2. DOCETAXEL [Suspect]
     Dosage: 125 MG
     Dates: end: 20080904
  3. ATIVAN [Concomitant]
  4. COMPAZINE [Concomitant]
  5. DEXAMETHASONE [Concomitant]
  6. SYNTHROID [Concomitant]
  7. VICODIN [Concomitant]
  8. ZOFRAN [Concomitant]

REACTIONS (11)
  - ASTHENIA [None]
  - CARDIOMEGALY [None]
  - CONSTIPATION [None]
  - DIARRHOEA [None]
  - DIZZINESS [None]
  - DYSPNOEA [None]
  - HEADACHE [None]
  - MYOCARDIAL INFARCTION [None]
  - PALPITATIONS [None]
  - PYREXIA [None]
  - SYNCOPE [None]
